FAERS Safety Report 16775962 (Version 12)
Quarter: 2021Q1

REPORT INFORMATION
  Report Type: Spontaneous
  Country: US (occurrence: US)
  Receive Date: 20190905
  Receipt Date: 20210205
  Transmission Date: 20210419
  Serious: Yes (Other)
  Sender: FDA-Public Use
  Company Number: US-PFIZER INC-2019352360

PATIENT
  Age: 29 Year
  Sex: Female

DRUGS (15)
  1. SYNAREL [Suspect]
     Active Substance: NAFARELIN ACETATE
     Indication: PELVIC PAIN
     Dosage: 0.2 MG, TWO TIMES A DAY (ALTERNATING NOSTRILS WITH MORNING AND EVENING DOSES)
     Route: 055
     Dates: start: 201811
  2. NORETHISTERONE [Concomitant]
     Active Substance: NORETHINDRONE
     Dosage: 10 MG, DAILY
     Route: 048
  3. PERCOCET [Concomitant]
     Active Substance: ACETAMINOPHEN\OXYCODONE HYDROCHLORIDE
     Indication: PAIN
     Dosage: 1 DF, UNK (5/325)Q(EVERY 4?6HRS)
     Route: 048
     Dates: start: 20200217
  4. NICOTINE. [Concomitant]
     Active Substance: NICOTINE
     Dosage: 4 MG, UNK(Q(EVERY) 2 HOUR)
     Route: 048
     Dates: start: 20191126
  5. SYNAREL [Suspect]
     Active Substance: NAFARELIN ACETATE
     Indication: ENDOMETRIOSIS
     Dosage: 1 SPRAY INTRANASALLY TWICE A DAY
     Route: 045
     Dates: start: 201612
  6. SYNAREL [Suspect]
     Active Substance: NAFARELIN ACETATE
     Indication: DYSMENORRHOEA
     Dosage: 1 SPRAY, INTRANASAL BID
     Route: 045
     Dates: start: 201811
  7. NORETHISTERONE [Concomitant]
     Active Substance: NORETHINDRONE
     Indication: HAEMORRHAGE
     Dosage: 15 MG, UNK
  8. OXYCODONE [Concomitant]
     Active Substance: OXYCODONE
     Indication: PAIN
     Dosage: UNK
  9. NAFARELIN [Concomitant]
     Active Substance: NAFARELIN
     Dosage: UNK UNK, 2X/DAY(0.2MG/INH NASAL SPRAY)
     Route: 045
     Dates: start: 20190909
  10. LUPRON [Concomitant]
     Active Substance: LEUPROLIDE ACETATE
     Dosage: UNK
  11. TRAMADOL. [Concomitant]
     Active Substance: TRAMADOL
     Indication: PAIN
     Dosage: 50 MG, AS NEEDED(EVERY 6 HOURS)
     Route: 048
     Dates: start: 20190806
  12. PROMETHAZINE [Concomitant]
     Active Substance: PROMETHAZINE HYDROCHLORIDE
     Dosage: 12.5 MG, UNK
     Route: 048
     Dates: start: 20191111
  13. BOTOX [Concomitant]
     Active Substance: ONABOTULINUMTOXINA
     Dosage: UNK
     Dates: start: 20191202
  14. NORETHISTERONE [Concomitant]
     Active Substance: NORETHINDRONE
     Indication: ADJUVANT THERAPY
     Dosage: 5 MG, DAILY
  15. SYNAREL [Suspect]
     Active Substance: NAFARELIN ACETATE
     Indication: HAEMORRHAGE
     Dosage: UNK, TAKING MEDICATION DIFFERENTLY
     Route: 055

REACTIONS (6)
  - Condition aggravated [Recovered/Resolved]
  - Stress [Unknown]
  - Vaginal haemorrhage [Recovering/Resolving]
  - Product dispensing issue [Unknown]
  - Intentional product misuse [Unknown]
  - Endometriosis [Recovering/Resolving]

NARRATIVE: CASE EVENT DATE: 201908
